FAERS Safety Report 26061487 (Version 1)
Quarter: 2025Q4

REPORT INFORMATION
  Report Type: Spontaneous
  Country: US (occurrence: US)
  Receive Date: 20251118
  Receipt Date: 20251118
  Transmission Date: 20260118
  Serious: No
  Sender: NOVO NORDISK
  Company Number: US-NOVOPROD-1462658

PATIENT
  Age: 28 Year
  Sex: Male

DRUGS (1)
  1. INSULIN ASPART [Suspect]
     Active Substance: INSULIN ASPART
     Indication: Type 1 diabetes mellitus
     Dosage: 50 IU, QD
     Route: 058
     Dates: start: 202505

REACTIONS (4)
  - Muscle spasms [Not Recovered/Not Resolved]
  - Paraesthesia [Not Recovered/Not Resolved]
  - Therapeutic product effect delayed [Not Recovered/Not Resolved]
  - Drug ineffective [Not Recovered/Not Resolved]

NARRATIVE: CASE EVENT DATE: 20250501
